FAERS Safety Report 25752594 (Version 1)
Quarter: 2025Q3

REPORT INFORMATION
  Report Type: Report from Study
  Country: EU (occurrence: EU)
  Receive Date: 20250902
  Receipt Date: 20250902
  Transmission Date: 20251021
  Serious: Yes (Other)
  Sender: MYLAN
  Company Number: EU-MYLANLABS-2025M1068336

PATIENT
  Age: 40 Year
  Sex: Male

DRUGS (36)
  1. CLOZAPINE [Suspect]
     Active Substance: CLOZAPINE
     Indication: Schizophrenia
  2. CLOZAPINE [Suspect]
     Active Substance: CLOZAPINE
     Route: 065
  3. CLOZAPINE [Suspect]
     Active Substance: CLOZAPINE
     Route: 065
  4. CLOZAPINE [Suspect]
     Active Substance: CLOZAPINE
  5. CLOZAPINE [Suspect]
     Active Substance: CLOZAPINE
     Dosage: 150 MILLIGRAM, QD (ONCE PER DAY IN 4 WEEKS)
     Route: 065
     Dates: end: 20250728
  6. CLOZAPINE [Suspect]
     Active Substance: CLOZAPINE
     Dosage: 150 MILLIGRAM, QD (ONCE PER DAY IN 4 WEEKS)
     Route: 065
     Dates: end: 20250728
  7. CLOZAPINE [Suspect]
     Active Substance: CLOZAPINE
     Dosage: 150 MILLIGRAM, QD (ONCE PER DAY IN 4 WEEKS)
     Dates: end: 20250728
  8. CLOZAPINE [Suspect]
     Active Substance: CLOZAPINE
     Dosage: 150 MILLIGRAM, QD (ONCE PER DAY IN 4 WEEKS)
     Dates: end: 20250728
  9. CLOZAPINE [Suspect]
     Active Substance: CLOZAPINE
     Dosage: 75 MILLIGRAM, QD (ONCE PER DAY)
     Dates: end: 20250804
  10. CLOZAPINE [Suspect]
     Active Substance: CLOZAPINE
     Dosage: 75 MILLIGRAM, QD (ONCE PER DAY)
     Route: 065
     Dates: end: 20250804
  11. CLOZAPINE [Suspect]
     Active Substance: CLOZAPINE
     Dosage: 75 MILLIGRAM, QD (ONCE PER DAY)
     Dates: end: 20250804
  12. CLOZAPINE [Suspect]
     Active Substance: CLOZAPINE
     Dosage: 75 MILLIGRAM, QD (ONCE PER DAY)
     Route: 065
     Dates: end: 20250804
  13. ESLICARBAZEPINE ACETATE [Concomitant]
     Active Substance: ESLICARBAZEPINE ACETATE
     Dosage: UNK, BID (400MG IN THE MORNINGS AND 800MG IN THE EVENINGS, REGULARLY)
  14. ESLICARBAZEPINE ACETATE [Concomitant]
     Active Substance: ESLICARBAZEPINE ACETATE
     Dosage: UNK, BID (400MG IN THE MORNINGS AND 800MG IN THE EVENINGS, REGULARLY)
     Route: 065
  15. ESLICARBAZEPINE ACETATE [Concomitant]
     Active Substance: ESLICARBAZEPINE ACETATE
     Dosage: UNK, BID (400MG IN THE MORNINGS AND 800MG IN THE EVENINGS, REGULARLY)
     Route: 065
  16. ESLICARBAZEPINE ACETATE [Concomitant]
     Active Substance: ESLICARBAZEPINE ACETATE
     Dosage: UNK, BID (400MG IN THE MORNINGS AND 800MG IN THE EVENINGS, REGULARLY)
  17. CLOBAZAM [Concomitant]
     Active Substance: CLOBAZAM
     Dosage: 20 MILLIGRAM, QD (ONCE PER DAY, REGULARLY)
  18. CLOBAZAM [Concomitant]
     Active Substance: CLOBAZAM
     Dosage: 20 MILLIGRAM, QD (ONCE PER DAY, REGULARLY)
     Route: 065
  19. CLOBAZAM [Concomitant]
     Active Substance: CLOBAZAM
     Dosage: 20 MILLIGRAM, QD (ONCE PER DAY, REGULARLY)
     Route: 065
  20. CLOBAZAM [Concomitant]
     Active Substance: CLOBAZAM
     Dosage: 20 MILLIGRAM, QD (ONCE PER DAY, REGULARLY)
  21. SODIUM PICOSULFATE [Concomitant]
     Active Substance: SODIUM PICOSULFATE
     Dosage: UNK, QD (10-20 DROPS ONCE PER DAY, AS NEEDED)
  22. SODIUM PICOSULFATE [Concomitant]
     Active Substance: SODIUM PICOSULFATE
     Dosage: UNK, QD (10-20 DROPS ONCE PER DAY, AS NEEDED)
     Route: 065
  23. SODIUM PICOSULFATE [Concomitant]
     Active Substance: SODIUM PICOSULFATE
     Dosage: UNK, QD (10-20 DROPS ONCE PER DAY, AS NEEDED)
     Route: 065
  24. SODIUM PICOSULFATE [Concomitant]
     Active Substance: SODIUM PICOSULFATE
     Dosage: UNK, QD (10-20 DROPS ONCE PER DAY, AS NEEDED)
  25. POLYETHYLENE GLYCOL 4000 [Concomitant]
     Active Substance: POLYETHYLENE GLYCOL 4000
  26. POLYETHYLENE GLYCOL 4000 [Concomitant]
     Active Substance: POLYETHYLENE GLYCOL 4000
     Route: 065
  27. POLYETHYLENE GLYCOL 4000 [Concomitant]
     Active Substance: POLYETHYLENE GLYCOL 4000
     Route: 065
  28. POLYETHYLENE GLYCOL 4000 [Concomitant]
     Active Substance: POLYETHYLENE GLYCOL 4000
  29. PANADOL [Concomitant]
     Active Substance: ACETAMINOPHEN
  30. PANADOL [Concomitant]
     Active Substance: ACETAMINOPHEN
     Route: 065
  31. PANADOL [Concomitant]
     Active Substance: ACETAMINOPHEN
     Route: 065
  32. PANADOL [Concomitant]
     Active Substance: ACETAMINOPHEN
  33. DIAZEPAM [Concomitant]
     Active Substance: DIAZEPAM
  34. DIAZEPAM [Concomitant]
     Active Substance: DIAZEPAM
     Route: 065
  35. DIAZEPAM [Concomitant]
     Active Substance: DIAZEPAM
     Route: 065
  36. DIAZEPAM [Concomitant]
     Active Substance: DIAZEPAM

REACTIONS (7)
  - Myocarditis [Recovered/Resolved]
  - C-reactive protein increased [Recovered/Resolved]
  - Troponin T increased [Recovered/Resolved]
  - Dyspnoea [Recovered/Resolved]
  - Asthenia [Recovered/Resolved]
  - Hypoaesthesia [Recovered/Resolved]
  - Musculoskeletal stiffness [Recovered/Resolved]

NARRATIVE: CASE EVENT DATE: 20250101
